FAERS Safety Report 16398138 (Version 1)
Quarter: 2019Q2

REPORT INFORMATION
  Report Type: Spontaneous
  Country: US (occurrence: US)
  Receive Date: 20190501
  Receipt Date: 20190501
  Transmission Date: 20190711
  Serious: Yes (Hospitalization)
  Sender: FDA-Public Use
  Company Number: None

PATIENT
  Age: 78 Year
  Sex: Male

DRUGS (1)
  1. DAPSONE. [Suspect]
     Active Substance: DAPSONE
     Indication: HIV INFECTION
     Route: 048
     Dates: start: 20181009, end: 20190311

REACTIONS (8)
  - Diarrhoea [None]
  - Atrial fibrillation [None]
  - Respiratory failure [None]
  - Abdominal pain [None]
  - Thrombocytopenia [None]
  - Haemolytic anaemia [None]
  - Bone marrow failure [None]
  - Dizziness [None]

NARRATIVE: CASE EVENT DATE: 20190311
